FAERS Safety Report 6327937-0 (Version None)
Quarter: 2009Q3

REPORT INFORMATION
  Report Type: 
  Country: None (occurrence: None)
  Receive Date: 20090824
  Receipt Date: 20090807
  Transmission Date: 20100115
  Serious: Yes (Death)
  Sender: FDA-Public Use
  Company Number: 2009AL005095

PATIENT
  Age: 91 Year
  Sex: Female

DRUGS (11)
  1. DIGOXIN [Suspect]
     Indication: ATRIAL FIBRILLATION
     Dosage: 0.125MG, DAILY, PO
     Route: 048
     Dates: end: 20090219
  2. CARVEDILOL [Concomitant]
  3. ISOTARD [Concomitant]
  4. NICORANDIL [Concomitant]
  5. BUMETANIDE [Concomitant]
  6. SPIRONOLACTONE [Concomitant]
  7. FERROUS SULFATE TAB [Concomitant]
  8. OMEPRAZOLE [Concomitant]
  9. INTERFERON GAMMA [Concomitant]
  10. GLYCERYL TRINITRATE [Concomitant]
  11. SIMVASTATIN [Concomitant]

REACTIONS (4)
  - DRUG LEVEL ABOVE THERAPEUTIC [None]
  - RENAL FAILURE ACUTE [None]
  - SEPSIS [None]
  - UROSEPSIS [None]
